FAERS Safety Report 4621501-7 (Version None)
Quarter: 2005Q1

REPORT INFORMATION
  Report Type: 
  Country: None (occurrence: None)
  Receive Date: 20050328
  Receipt Date: 20050310
  Transmission Date: 20050727
  Serious: No
  Sender: FDA-Public Use
  Company Number: 10516

PATIENT
  Age: 10 Year
  Sex: Male

DRUGS (8)
  1. METHOTREXATE [Suspect]
     Indication: JUVENILE ARTHRITIS
     Dosage: 12.5 MG WEEKLY
     Route: 058
  2. ETANERCEPT [Suspect]
     Indication: JUVENILE ARTHRITIS
     Dosage: 11.2 MG 2/WK/16.25 MG 2/WK
     Route: 058
  3. CODEINE [Concomitant]
  4. DESMOPRESSIN [Concomitant]
  5. PREDNISOLONE [Concomitant]
  6. PIROXICAM [Concomitant]
  7. DIHYDOCODEINE [Concomitant]
  8. CORTICOSTEROID [Concomitant]

REACTIONS (1)
  - IMPETIGO [None]
